FAERS Safety Report 17660433 (Version 2)
Quarter: 2025Q3

REPORT INFORMATION
  Report Type: Spontaneous
  Country: US (occurrence: US)
  Receive Date: 20200413
  Receipt Date: 20250708
  Transmission Date: 20251021
  Serious: Yes (Other)
  Sender: PFIZER
  Company Number: US-PFIZER INC-2017184314

PATIENT
  Age: 66 Year
  Sex: Female
  Weight: 89.796 kg

DRUGS (3)
  1. XELJANZ XR [Suspect]
     Active Substance: TOFACITINIB CITRATE
     Indication: Rheumatoid arthritis
     Dosage: 11 MG, DAILY
     Route: 048
  2. METHOTREXATE [Concomitant]
     Active Substance: METHOTREXATE
     Indication: Arthritis
     Dosage: 0.6 MG, WEEKLY
  3. METHOTREXATE [Concomitant]
     Active Substance: METHOTREXATE
     Dosage: 0.9 MG, WEEKLY

REACTIONS (5)
  - Neuralgia [Unknown]
  - Sensation of foreign body [Unknown]
  - Pain [Unknown]
  - Dysstasia [Unknown]
  - Illness [Unknown]
